FAERS Safety Report 10261545 (Version 1)
Quarter: 2014Q2

REPORT INFORMATION
  Report Type: Spontaneous
  Country: FR (occurrence: FR)
  Receive Date: 20140626
  Receipt Date: 20140626
  Transmission Date: 20141212
  Serious: Yes (Death)
  Sender: FDA-Public Use
  Company Number: PHHY2014FR077932

PATIENT
  Age: 72 Year
  Sex: Female

DRUGS (7)
  1. GLIVEC [Suspect]
     Indication: CHRONIC MYELOID LEUKAEMIA
     Dosage: UNK UKN, QD
     Route: 048
     Dates: start: 200503
  2. GLIVEC [Suspect]
     Dosage: 300 MG, QD
     Route: 048
     Dates: start: 2009
  3. BI TILDIEM [Concomitant]
     Dosage: UNK UKN, UNK
  4. MOTILIUM//DOMPERIDONE [Concomitant]
     Dosage: UNK UKN, UNK
  5. KARDEGIC [Concomitant]
     Dosage: 75 MG, UNK
  6. GAVISCON                                /GFR/ [Concomitant]
     Dosage: UNK UKN, UNK
  7. PANTOPRAZOLE [Concomitant]
     Dosage: UNK UKN, UNK

REACTIONS (2)
  - Cholangiocarcinoma [Fatal]
  - Second primary malignancy [Fatal]
